FAERS Safety Report 6726033-8 (Version None)
Quarter: 2010Q2

REPORT INFORMATION
  Report Type: 
  Country: None (occurrence: None)
  Receive Date: 20100512
  Receipt Date: 20100507
  Transmission Date: 20101027
  Serious: No
  Sender: FDA-Public Use
  Company Number: A20100688

PATIENT
  Age: 52 Year
  Sex: Female

DRUGS (4)
  1. LEVOFLOXACIN [Suspect]
     Indication: ADENOVIRAL CONJUNCTIVITIS
     Dosage: IO
     Route: 031
     Dates: start: 20100428, end: 20100429
  2. LEVOCABASTINE HYDROCHLORIDE [Suspect]
     Dosage: IO
     Route: 031
     Dates: start: 20100426, end: 20100427
  3. FLUOROMETHOLONE [Suspect]
     Dosage: IO
     Route: 031
     Dates: start: 20100428, end: 20100429
  4. PREDNISOLONE ACETATE [Suspect]
     Dosage: IO
     Route: 031
     Dates: start: 20100430, end: 20100430

REACTIONS (9)
  - BURNING SENSATION [None]
  - DISCOMFORT [None]
  - DYSPNOEA [None]
  - EYELID OEDEMA [None]
  - PRURITUS [None]
  - RASH [None]
  - RESPIRATORY DISORDER [None]
  - SWELLING [None]
  - SWELLING FACE [None]
